FAERS Safety Report 14133103 (Version 1)
Quarter: 2017Q4

REPORT INFORMATION
  Report Type: Report from Study
  Country: None (occurrence: MX)
  Receive Date: 20171027
  Receipt Date: 20171027
  Transmission Date: 20180321
  Serious: Yes (Hospitalization)
  Sender: FDA-Public Use
  Company Number: MX-ABBVIE-17K-107-2114039-00

PATIENT
  Age: 41 Year
  Sex: Male
  Weight: 57 kg

DRUGS (4)
  1. ALEVIAN DUO [Concomitant]
     Indication: COLITIS ULCERATIVE
     Route: 054
     Dates: start: 20160626
  2. SALOFALK [Concomitant]
     Active Substance: MESALAMINE
     Indication: COLITIS ULCERATIVE
     Route: 048
     Dates: start: 20160626
  3. HUMIRA [Suspect]
     Active Substance: ADALIMUMAB
     Indication: COLITIS ULCERATIVE
     Route: 058
     Dates: start: 20160925
  4. HUMIRA [Suspect]
     Active Substance: ADALIMUMAB
     Route: 058

REACTIONS (7)
  - Depression [Not Recovered/Not Resolved]
  - Rectal discharge [Recovering/Resolving]
  - Pallor [Not Recovered/Not Resolved]
  - Fear [Unknown]
  - Stress [Unknown]
  - Weight decreased [Not Recovered/Not Resolved]
  - Diarrhoea [Recovering/Resolving]

NARRATIVE: CASE EVENT DATE: 20170919
